FAERS Safety Report 4678432-6 (Version None)
Quarter: 2005Q2

REPORT INFORMATION
  Report Type: 
  Country: None (occurrence: None)
  Receive Date: 20050531
  Receipt Date: 20050531
  Transmission Date: 20051028
  Serious: Yes (Other)
  Sender: FDA-Public Use
  Company Number: None

PATIENT
  Sex: Female
  Weight: 73.0291 kg

DRUGS (2)
  1. BUPROPION HCL [Suspect]
     Indication: DEPENDENCE
     Dosage: 150MG PO BID
     Route: 048
     Dates: start: 20050426
  2. BUPROPION HCL [Suspect]
     Indication: TOBACCO USER
     Dosage: 150MG PO BID
     Route: 048
     Dates: start: 20050426

REACTIONS (1)
  - SEDATION [None]
